FAERS Safety Report 5036005-X (Version None)
Quarter: 2006Q2

REPORT INFORMATION
  Report Type: 
  Country: None (occurrence: None)
  Receive Date: 20060526
  Receipt Date: 20060317
  Transmission Date: 20061013
  Serious: No
  Sender: FDA-Public Use
  Company Number: 223158

PATIENT
  Age: 45 Year
  Sex: Male
  Weight: 102 kg

DRUGS (2)
  1. RAPTIVA [Suspect]
     Indication: PSORIASIS
     Dosage: 1 ML, 1/WEEK, SUBCUTANEOUS
     Route: 058
     Dates: start: 20051128
  2. SORIATANE [Concomitant]

REACTIONS (1)
  - RASH [None]
